FAERS Safety Report 8571791 (Version 2)
Quarter: 2013Q2

REPORT INFORMATION
  Report Type: Report from Study
  Country: US (occurrence: US)
  Receive Date: 20120521
  Receipt Date: 20130503
  Transmission Date: 20140414
  Serious: Yes (Other)
  Sender: FDA-Public Use
  Company Number: US-UCBSA-8054282

PATIENT
  Age: 29 Year
  Sex: Female

DRUGS (12)
  1. KEPPRA [Suspect]
     Indication: EPILEPSY
     Dosage: DOSE FREQ.: DAILY
     Dates: end: 20091004
  2. KEPPRA [Suspect]
     Indication: EPILEPSY
     Dosage: DOSE FREQ.: DAILY
     Dates: start: 20091105
  3. KEPPRA XR [Suspect]
     Indication: EPILEPSY
     Dates: start: 20091005, end: 20091104
  4. FOLIC ACID [Suspect]
     Indication: PREGNANCY
     Route: 048
  5. PRENATAL VITAMIN [Concomitant]
     Indication: PREGNANCY
     Dosage: 1 TABLET DAILY DOSE FREQ.: DAILY
     Route: 048
  6. DHA SUPPLEMENT [Concomitant]
     Indication: PREGNANCY
     Dosage: 1 TAB DAILY DOSE FREQ.: DAILY
     Route: 048
     Dates: start: 200910
  7. VITAMIN D SUPPLEMENT [Concomitant]
     Indication: VITAMIN SUPPLEMENTATION
     Dosage: DOSE FREQ.: DAILY
     Route: 048
     Dates: start: 20091015
  8. COLACE [Concomitant]
     Indication: CONSTIPATION PROPHYLAXIS
     Route: 048
  9. BABY ASPIRIN [Concomitant]
     Indication: ANTICOAGULANT THERAPY
     Dosage: 1 TAB DAILY DOSE FREQ.: DAILY
     Route: 048
  10. IV IGG [Concomitant]
     Indication: IMMUNODEFICIENCY
     Dosage: DOSE FREQ.: ONCE MONTHLY
     Route: 042
  11. TOPAMAX [Concomitant]
     Indication: CONVULSION
     Dosage: DOSE FREQ.: DAILY
     Dates: end: 200907
  12. PEPCID [Concomitant]
     Route: 048

REACTIONS (7)
  - Postpartum sepsis [Recovered/Resolved]
  - Postpartum haemorrhage [Recovered/Resolved]
  - Complex partial seizures [Recovered/Resolved]
  - Petit mal epilepsy [Unknown]
  - Vitamin D deficiency [Not Recovered/Not Resolved]
  - Pregnancy [Recovered/Resolved]
  - Exposure during pregnancy [None]
